APPROVED DRUG PRODUCT: SUPPRELIN
Active Ingredient: HISTRELIN ACETATE
Strength: EQ 0.2MG BASE/ML
Dosage Form/Route: INJECTABLE;INJECTION
Application: N019836 | Product #001
Applicant: SHIRE DEVELOPMENT INC
Approved: Dec 24, 1991 | RLD: No | RS: No | Type: DISCN